FAERS Safety Report 9148412 (Version 1)
Quarter: 2013Q1

REPORT INFORMATION
  Report Type: Spontaneous
  Country: US (occurrence: US)
  Receive Date: 20130308
  Receipt Date: 20130308
  Transmission Date: 20140127
  Serious: Yes (Death)
  Sender: FDA-Public Use
  Company Number: PHEH2013US005513

PATIENT
  Age: 65 Year
  Sex: Male

DRUGS (8)
  1. TASIGNA [Suspect]
     Indication: CHRONIC MYELOMONOCYTIC LEUKAEMIA
     Dosage: 400 MG, BID
     Route: 048
     Dates: start: 20120410
  2. ASPIRIN [Concomitant]
  3. LIPITOR [Concomitant]
  4. PLAVIX [Concomitant]
  5. DARVOCET-N [Concomitant]
  6. AMLODIPINE BESILATE [Concomitant]
  7. METOPROLOL SUCCINATE [Concomitant]
  8. TOPIRAMATE [Concomitant]

REACTIONS (1)
  - Death [Fatal]
